FAERS Safety Report 18054547 (Version 1)
Quarter: 2020Q3

REPORT INFORMATION
  Report Type: Spontaneous
  Country: US (occurrence: US)
  Receive Date: 20200722
  Receipt Date: 20200722
  Transmission Date: 20201103
  Serious: No
  Sender: FDA-Public Use
  Company Number: None

PATIENT
  Sex: Female

DRUGS (1)
  1. BLUMEN CLEAR ADVANCED HAND SANITIZER [Suspect]
     Active Substance: ALCOHOL
     Dates: start: 20200701, end: 20200714

REACTIONS (3)
  - Recalled product administered [None]
  - Application site pain [None]
  - Application site dryness [None]

NARRATIVE: CASE EVENT DATE: 20200703
